FAERS Safety Report 8984945 (Version 1)
Quarter: 2012Q4

REPORT INFORMATION
  Report Type: 
  Country: US (occurrence: US)
  Receive Date: 20121226
  Receipt Date: 20121226
  Transmission Date: 20130627
  Serious: No
  Sender: FDA-Public Use
  Company Number: US-PFIZER INC-2012325165

PATIENT
  Age: 65 Year
  Sex: Female
  Weight: 118 kg

DRUGS (17)
  1. TIKOSYN [Suspect]
     Indication: ATRIAL FIBRILLATION
     Dosage: 0.5 mg, 2x/day
     Route: 048
  2. LANTUS [Concomitant]
     Dosage: UNK
  3. CYMBALTA [Concomitant]
     Dosage: UNK
  4. HUMALOG [Concomitant]
     Dosage: UNK
  5. SYMLINPEN 120 [Concomitant]
     Dosage: UNK
  6. SYNTHROID [Concomitant]
     Dosage: UNK
  7. VITAMIN D [Concomitant]
     Dosage: 2000 IU, 1x/day
  8. LOSARTAN [Concomitant]
     Dosage: UNK
  9. FUROSEMIDE [Concomitant]
     Dosage: UNK
  10. LIPITOR [Concomitant]
     Dosage: UNK
  11. XANAX [Concomitant]
     Dosage: UNK
  12. TOPROL XL [Concomitant]
     Dosage: UNK
  13. WARFARIN [Concomitant]
     Dosage: UNK
  14. DIGOXIN [Concomitant]
     Dosage: UNK
  15. LAMICTAL XR [Concomitant]
     Dosage: UNK
  16. HYDROCODONE [Concomitant]
     Dosage: UNK
  17. VESICARE [Concomitant]
     Dosage: UNK

REACTIONS (2)
  - Headache [Not Recovered/Not Resolved]
  - Blood test abnormal [Unknown]
